FAERS Safety Report 16535882 (Version 1)
Quarter: 2019Q3

REPORT INFORMATION
  Report Type: Report from Study
  Country: US (occurrence: US)
  Receive Date: 20190705
  Receipt Date: 20190705
  Transmission Date: 20191004
  Serious: Yes (Other)
  Sender: FDA-Public Use
  Company Number: PHEH2019US027527

PATIENT
  Sex: Female

DRUGS (1)
  1. ENTRESTO [Suspect]
     Active Substance: SACUBITRIL\VALSARTAN
     Indication: PRODUCT USED FOR UNKNOWN INDICATION
     Dosage: 1 DF (97MG OF SACUBITRIL AND 103 MG OF VALSARTAN), BID
     Route: 065

REACTIONS (3)
  - Fatigue [Unknown]
  - Cardiac disorder [Unknown]
  - Pulmonary congestion [Unknown]
